FAERS Safety Report 6845071-8 (Version None)
Quarter: 2010Q3

REPORT INFORMATION
  Report Type: 
  Country: None (occurrence: None)
  Receive Date: 20100715
  Receipt Date: 20070814
  Transmission Date: 20110219
  Serious: No
  Sender: FDA-Public Use
  Company Number: US-PFIZER INC-2007068137

PATIENT
  Sex: Female
  Weight: 102.1 kg

DRUGS (4)
  1. CHANTIX [Suspect]
     Indication: SMOKING CESSATION THERAPY
     Dates: start: 20070813
  2. INTERFERON BETA [Concomitant]
  3. PROVIGIL [Concomitant]
  4. IMITREX [Concomitant]
     Indication: MIGRAINE

REACTIONS (2)
  - FEELING ABNORMAL [None]
  - HYPERHIDROSIS [None]
